FAERS Safety Report 8433247-8 (Version None)
Quarter: 2012Q2

REPORT INFORMATION
  Report Type: 
  Country: None (occurrence: None)
  Receive Date: 20120323
  Receipt Date: 20110803
  Transmission Date: 20120825
  Serious: Yes (Hospitalization)
  Sender: FDA-Public Use
  Company Number: 163-21880-11070654

PATIENT
  Age: 69 Year
  Sex: Female
  Weight: 83.9154 kg

DRUGS (27)
  1. ADVAIR DISKUS 100/50 [Concomitant]
  2. IRON [Concomitant]
  3. METOPROLOL TARTRATE [Concomitant]
  4. TRICOR [Concomitant]
  5. MULTI-VITAMINS [Concomitant]
  6. DEXILANT [Concomitant]
  7. NEURONTIN [Concomitant]
  8. TESSALON [Concomitant]
  9. REVLIMID [Suspect]
     Indication: MULTIPLE MYELOMA
     Dosage: 25 MG, 1 IN 1 D, PO
     Route: 048
     Dates: start: 20101022, end: 20110522
  10. OXYBUTYNIN [Concomitant]
  11. DEXAMETHASONE [Concomitant]
  12. QUININE SULFATE [Concomitant]
  13. DIFLUCAN [Concomitant]
  14. ALDACTONE [Concomitant]
  15. LASIX [Concomitant]
  16. OMEGA-3 FATTY ACIDS [Concomitant]
  17. VALTREX [Concomitant]
  18. TRAMADOL HCL [Concomitant]
  19. ASPIRIN [Concomitant]
  20. KLOR-CON [Concomitant]
  21. LEVOTHYROXINE SODIUM [Concomitant]
  22. ULTRAM [Concomitant]
  23. ACTOS [Concomitant]
  24. CALCIUM-MAGNESIUM-ZINC [Concomitant]
  25. GLIMEPIRIDE [Concomitant]
  26. HUMALOG [Concomitant]
  27. ASCORBIC ACID [Concomitant]

REACTIONS (1)
  - PNEUMONIA [None]
